FAERS Safety Report 7451962-X (Version None)
Quarter: 2011Q2

REPORT INFORMATION
  Report Type: 
  Country: None (occurrence: None)
  Receive Date: 20110502
  Receipt Date: 20110421
  Transmission Date: 20111010
  Serious: Yes (Other)
  Sender: FDA-Public Use
  Company Number: PHHY2011TW33967

PATIENT
  Sex: Male

DRUGS (1)
  1. RISPERIDONE [Suspect]
     Indication: PSYCHIATRIC SYMPTOM
     Dosage: 1 MG, QD
     Route: 048

REACTIONS (5)
  - COUGH [None]
  - AFFECTIVE DISORDER [None]
  - HICCUPS [None]
  - DIAPHRAGMATIC DISORDER [None]
  - ABNORMAL BEHAVIOUR [None]
